FAERS Safety Report 8823214 (Version 1)
Quarter: 2012Q4

REPORT INFORMATION
  Report Type: 
  Country: GB (occurrence: GB)
  Receive Date: 20121003
  Receipt Date: 20121003
  Transmission Date: 20130627
  Serious: Yes (Other)
  Sender: FDA-Public Use
  Company Number: GB-ELI_LILLY_AND_COMPANY-GB201209006163

PATIENT
  Sex: Female
  Weight: 50 kg

DRUGS (4)
  1. FORSTEO [Suspect]
     Indication: OSTEOPOROSIS
     Dosage: UNK, unknown
     Route: 058
     Dates: start: 201107, end: 201201
  2. CAPTOPRIL [Concomitant]
     Indication: HYPERTENSION
     Dosage: 12.5 mg, bid
     Route: 048
  3. CELIPROLOL [Concomitant]
     Indication: HYPERTENSION
     Dosage: 400 mg, qd
     Route: 048
  4. FELODIPINE [Concomitant]
     Indication: HYPERTENSION
     Dosage: 10 mg, qd
     Route: 048

REACTIONS (1)
  - Photosensitivity reaction [Not Recovered/Not Resolved]
